FAERS Safety Report 8174339-0 (Version None)
Quarter: 2012Q1

REPORT INFORMATION
  Report Type: 
  Country: None (occurrence: None)
  Receive Date: 20120229
  Receipt Date: 20120220
  Transmission Date: 20120608
  Serious: Yes (Hospitalization, Other)
  Sender: FDA-Public Use
  Company Number: US-BAYER-2011-047159

PATIENT
  Age: 21 Year
  Sex: Female
  Weight: 52.154 kg

DRUGS (7)
  1. YAZ [Suspect]
     Indication: PREMENSTRUAL SYNDROME
  2. PRILOSEC [Concomitant]
  3. YASMIN [Suspect]
     Indication: CONTRACEPTION
     Dosage: UNK
     Dates: start: 20070601, end: 20080101
  4. YAZ [Suspect]
     Indication: CONTRACEPTION
     Dosage: UNK
     Dates: start: 20080101, end: 20091101
  5. YASMIN [Suspect]
     Indication: PREMENSTRUAL SYNDROME
  6. FLUCONAZOLE [Concomitant]
     Dosage: 150 MG, UNK
     Route: 048
     Dates: start: 20080624
  7. METRONIDAZOLE HYDROCHLORIDE [Concomitant]
     Dosage: UNK
     Route: 067
     Dates: start: 20080624

REACTIONS (10)
  - ANXIETY [None]
  - ABDOMINAL PAIN UPPER [None]
  - GALLBLADDER DISORDER [None]
  - INJURY [None]
  - EMOTIONAL DISTRESS [None]
  - PSYCHOLOGICAL TRAUMA [None]
  - CHOLECYSTITIS [None]
  - BILE DUCT STONE [None]
  - PANCREATITIS [None]
  - PAIN [None]
